FAERS Safety Report 18350928 (Version 1)
Quarter: 2020Q4

REPORT INFORMATION
  Report Type: Spontaneous
  Country: US (occurrence: US)
  Receive Date: 20201006
  Receipt Date: 20201006
  Transmission Date: 20210114
  Serious: No
  Sender: FDA-Public Use
  Company Number: US-BRECKENRIDGE PHARMACEUTICAL, INC.-2092471

PATIENT
  Age: 60 Year
  Sex: Female
  Weight: 104.55 kg

DRUGS (4)
  1. SYNTHROID [Concomitant]
     Active Substance: LEVOTHYROXINE SODIUM
  2. INCRUSE ELLIPTA [Concomitant]
     Active Substance: UMECLIDINIUM BROMIDE
  3. BYSTOLIC [Concomitant]
     Active Substance: NEBIVOLOL HYDROCHLORIDE
  4. DULOXETINE. [Suspect]
     Active Substance: DULOXETINE
     Indication: NEURALGIA
     Route: 048

REACTIONS (9)
  - Coordination abnormal [None]
  - Nightmare [None]
  - Renal disorder [None]
  - Therapeutic response changed [None]
  - Somnolence [None]
  - Feeling drunk [None]
  - Paraesthesia [None]
  - Feeling abnormal [None]
  - Product quality issue [None]
